FAERS Safety Report 9844838 (Version 1)
Quarter: 2014Q1

REPORT INFORMATION
  Report Type: Spontaneous
  Country: GB (occurrence: None)
  Receive Date: 20140122
  Receipt Date: 20140122
  Transmission Date: 20141002
  Serious: Yes (Life-Threatening, Hospitalization, Other)
  Sender: FDA-Public Use
  Company Number: 2122078

PATIENT
  Sex: Female

DRUGS (6)
  1. CARBOPLATIN [Suspect]
     Indication: CHEMOTHERAPY
     Dates: start: 20130830
  2. GEMCITABINE HYDROCHLORIDE [Suspect]
     Indication: CHEMOTHERAPY
     Dates: start: 20130830
  3. EPIRUBICIN HYDROCHLORIDE [Suspect]
     Indication: CHEMOTHERAPY
     Dates: start: 20130225, end: 20130408
  4. DOCETAXEL [Suspect]
     Indication: CHEMOTHERAPY
     Dates: start: 20130429
  5. DENOSUMAB [Suspect]
     Indication: BONE DISORDER
     Dates: start: 20130830
  6. CYCLOPHOSPHAMIDE [Suspect]
     Indication: CHEMOTHERAPY
     Dates: start: 20130225, end: 20130408

REACTIONS (20)
  - Renal failure acute [None]
  - Gastrointestinal haemorrhage [None]
  - Vitamin D deficiency [None]
  - Hyperparathyroidism [None]
  - Hypocalcaemia [None]
  - Diarrhoea [None]
  - Back pain [None]
  - Muscular weakness [None]
  - Hypercalcaemia [None]
  - Metastases to bone [None]
  - Pleural effusion [None]
  - Metastases to lung [None]
  - Metastases to bone marrow [None]
  - Osteosclerosis [None]
  - Cancer pain [None]
  - Discomfort [None]
  - Asthenia [None]
  - Stress [None]
  - Computerised tomogram thorax abnormal [None]
  - Lower respiratory tract inflammation [None]
